FAERS Safety Report 6675005-0 (Version None)
Quarter: 2010Q1

REPORT INFORMATION
  Report Type: 
  Country: None (occurrence: None)
  Receive Date: 20100331
  Receipt Date: 20091023
  Transmission Date: 20100710
  Serious: Yes (Death)
  Sender: FDA-Public Use
  Company Number: 2009278735

PATIENT
  Age: 52 Year
  Sex: Male
  Weight: 70 kg

DRUGS (1)
  1. SUTENT [Suspect]
     Indication: RENAL CANCER
     Dosage: 50 MG, 1X/DAY, 28 DAYS ON, THEN OFF FOR 14 DAYS
     Dates: start: 20080901

REACTIONS (3)
  - DISEASE PROGRESSION [None]
  - RENAL CANCER [None]
  - WHITE BLOOD CELL COUNT INCREASED [None]
